FAERS Safety Report 5727482-7 (Version None)
Quarter: 2008Q2

REPORT INFORMATION
  Report Type: 
  Country: None (occurrence: None)
  Receive Date: 20080505
  Receipt Date: 20080429
  Transmission Date: 20081010
  Serious: Yes (Death, Hospitalization)
  Sender: FDA-Public Use
  Company Number: BR-ABBOTT-08P-020-0448083-00

PATIENT
  Sex: Male
  Weight: 79 kg

DRUGS (4)
  1. HUMIRA [Suspect]
     Indication: RHEUMATOID ARTHRITIS
     Route: 058
     Dates: start: 20070101, end: 20071201
  2. HUMIRA [Suspect]
     Dates: start: 20080201
  3. 12 UNSPECIFED MEDICATIONS [Concomitant]
     Indication: DEPRESSION
  4. 12 UNSPECIFED MEDICATIONS [Concomitant]
     Indication: RHEUMATOID ARTHRITIS

REACTIONS (12)
  - ANAEMIA [None]
  - ARTHRALGIA [None]
  - DIARRHOEA [None]
  - DIZZINESS [None]
  - ENDOCARDITIS [None]
  - GAIT DISTURBANCE [None]
  - INFECTION [None]
  - ISCHAEMIA [None]
  - MOUTH HAEMORRHAGE [None]
  - RESPIRATORY FAILURE [None]
  - SKIN DISCOLOURATION [None]
  - TOOTH EROSION [None]
